FAERS Safety Report 19752433 (Version 1)
Quarter: 2021Q3

REPORT INFORMATION
  Report Type: Spontaneous
  Country: PT (occurrence: PT)
  Receive Date: 20210827
  Receipt Date: 20210827
  Transmission Date: 20211014
  Serious: Yes (Other)
  Sender: FDA-Public Use
  Company Number: PT-SUN PHARMACEUTICAL INDUSTRIES LTD-2021R1-309229

PATIENT
  Age: 35 Year
  Sex: Female

DRUGS (1)
  1. MEDROXYPROGESTERONE [Suspect]
     Active Substance: MEDROXYPROGESTERONE
     Indication: PROGESTIN THERAPY
     Dosage: 25 MILLIGRAM, DAILY
     Route: 058

REACTIONS (2)
  - Panniculitis [Unknown]
  - Product administration error [Unknown]
